FAERS Safety Report 24622730 (Version 1)
Quarter: 2024Q4

REPORT INFORMATION
  Report Type: Spontaneous
  Country: FR (occurrence: FR)
  Receive Date: 20241115
  Receipt Date: 20241115
  Transmission Date: 20250115
  Serious: Yes (Death, Hospitalization, Disabling, Congenital Anomaly, Other)
  Sender: ASTELLAS
  Company Number: FR-009507513-2411FRA000127

PATIENT
  Age: 70 Year
  Sex: Female
  Weight: 77 kg

DRUGS (5)
  1. ENFORTUMAB VEDOTIN [Suspect]
     Active Substance: ENFORTUMAB VEDOTIN
     Indication: Product used for unknown indication
     Dosage: UNK
     Route: 042
     Dates: start: 20241008, end: 20241008
  2. ENFORTUMAB VEDOTIN [Suspect]
     Active Substance: ENFORTUMAB VEDOTIN
     Dosage: UNK
     Route: 042
     Dates: start: 20241015, end: 20241015
  3. KEYTRUDA [Suspect]
     Active Substance: PEMBROLIZUMAB
     Indication: Transitional cell carcinoma
     Dosage: UNK
     Route: 065
     Dates: start: 20240912
  4. KEYTRUDA [Suspect]
     Active Substance: PEMBROLIZUMAB
     Dosage: 200 MILLIGRAM, Q3W
     Route: 065
     Dates: start: 20241008, end: 20241008
  5. KEYTRUDA [Suspect]
     Active Substance: PEMBROLIZUMAB
     Dosage: 200 MILLIGRAM, Q3W
     Route: 065
     Dates: start: 20241015, end: 20241015

REACTIONS (4)
  - Renal failure [Fatal]
  - Tumour lysis syndrome [Fatal]
  - Toxic epidermal necrolysis [Fatal]
  - Malignant neoplasm progression [Fatal]

NARRATIVE: CASE EVENT DATE: 20240101
